FAERS Safety Report 24398454 (Version 1)
Quarter: 2024Q4

REPORT INFORMATION
  Report Type: Spontaneous
  Country: US (occurrence: US)
  Receive Date: 20241004
  Receipt Date: 20241004
  Transmission Date: 20250115
  Serious: No
  Sender: INTRA-CELLULAR THERAPIES
  Company Number: US-INTRA-CELLULAR THERAPIES, INC.-2024ICT01430

PATIENT
  Age: 66 Year
  Sex: Male
  Weight: 82.086 kg

DRUGS (12)
  1. CAPLYTA [Suspect]
     Active Substance: LUMATEPERONE
     Indication: Bipolar II disorder
     Dosage: 42 MG, 1X/DAY IN THE MORNING
     Dates: start: 20240723, end: 20240829
  2. CAPLYTA [Suspect]
     Active Substance: LUMATEPERONE
     Dosage: 21 MG, 1X/DAY AT NIGHT
     Dates: start: 20240830
  3. DEPAKOTE [Concomitant]
     Active Substance: DIVALPROEX SODIUM
     Dosage: UNK
     Dates: end: 202407
  4. DEPAKOTE [Concomitant]
     Active Substance: DIVALPROEX SODIUM
     Dosage: DECREASED
     Dates: start: 202407
  5. GABAPENTIN [Concomitant]
     Active Substance: GABAPENTIN
     Dosage: UNK
     Dates: end: 202407
  6. GABAPENTIN [Concomitant]
     Active Substance: GABAPENTIN
     Dosage: DECREASED
     Dates: start: 202407
  7. KLONOPIN [Concomitant]
     Active Substance: CLONAZEPAM
     Dosage: UNK
     Dates: end: 202407
  8. KLONOPIN [Concomitant]
     Active Substance: CLONAZEPAM
     Dosage: DECREASED
     Dates: start: 202407
  9. PANTOPRAZOLE [Concomitant]
     Active Substance: PANTOPRAZOLE
  10. LISINOPRIL [Concomitant]
     Active Substance: LISINOPRIL
  11. ASPIRIN [Concomitant]
     Active Substance: ASPIRIN
  12. AMANTADINE [Concomitant]
     Active Substance: AMANTADINE

REACTIONS (3)
  - Somnolence [Not Recovered/Not Resolved]
  - Fall [Not Recovered/Not Resolved]
  - Extra dose administered [Recovered/Resolved]

NARRATIVE: CASE EVENT DATE: 20240101
